FAERS Safety Report 20739561 (Version 1)
Quarter: 2022Q2

REPORT INFORMATION
  Report Type: Report from Study
  Country: CO (occurrence: CO)
  Receive Date: 20220422
  Receipt Date: 20220422
  Transmission Date: 20220720
  Serious: Yes (Hospitalization, Other)
  Sender: FDA-Public Use
  Company Number: CO-ABBVIE-22K-036-4366933-00

PATIENT
  Sex: Female
  Weight: 64 kg

DRUGS (3)
  1. HUMIRA [Suspect]
     Active Substance: ADALIMUMAB
     Indication: Uveitis
     Route: 058
     Dates: end: 20220303
  2. HUMIRA [Suspect]
     Active Substance: ADALIMUMAB
     Indication: Uveitis
     Route: 058
  3. PREDNISOLONE [Concomitant]
     Active Substance: PREDNISOLONE
     Indication: Eye operation
     Route: 048

REACTIONS (6)
  - Excessive skin [Recovered/Resolved]
  - Intraocular pressure increased [Recovering/Resolving]
  - Fluid retention [Recovered/Resolved]
  - Gastric bypass [Not Recovered/Not Resolved]
  - Wound infection [Recovered/Resolved]
  - Erythema [Recovered/Resolved]

NARRATIVE: CASE EVENT DATE: 20190101
